FAERS Safety Report 4767049-0 (Version None)
Quarter: 2005Q3

REPORT INFORMATION
  Report Type: 
  Country: None (occurrence: None)
  Receive Date: 20050908
  Receipt Date: 20050822
  Transmission Date: 20060218
  Serious: Yes (Other)
  Sender: FDA-Public Use
  Company Number: 217445

PATIENT

DRUGS (1)
  1. AVASTIN [Suspect]
     Indication: COLORECTAL CANCER

REACTIONS (1)
  - PANCREATITIS [None]
